FAERS Safety Report 9208300 (Version 1)
Quarter: 2013Q2

REPORT INFORMATION
  Report Type: Spontaneous
  Country: CA (occurrence: CA)
  Receive Date: 20130403
  Receipt Date: 20130403
  Transmission Date: 20140414
  Serious: Yes (Hospitalization)
  Sender: FDA-Public Use
  Company Number: CA-MYLANLABS-2013S1006654

PATIENT
  Age: 59 Year
  Sex: Female

DRUGS (5)
  1. CYCLOPHOSPHAMIDE [Suspect]
     Indication: BREAST CANCER
     Dosage: 600MG/M2 FOR 4 CYCLES
     Route: 065
     Dates: start: 200701
  2. PACLITAXEL [Suspect]
     Indication: BREAST CANCER
     Dosage: 175MG/M2
     Route: 065
     Dates: start: 200703
  3. GEMCITABINE [Suspect]
     Indication: BREAST CANCER
     Dosage: 2000MG/M2
     Route: 065
     Dates: start: 200703
  4. DOCETAXEL [Suspect]
     Indication: BREAST CANCER
     Dosage: 100MG/M2
     Route: 065
  5. DOXORUBICIN [Concomitant]
     Indication: BREAST CANCER
     Dosage: 60MG/M2 FOR 4 CYCLES
     Route: 065
     Dates: start: 200701

REACTIONS (1)
  - Alveolitis allergic [Recovered/Resolved]
